FAERS Safety Report 9938060 (Version 1)
Quarter: 2014Q1

REPORT INFORMATION
  Report Type: Spontaneous
  Country: IT (occurrence: IT)
  Receive Date: 20140303
  Receipt Date: 20140303
  Transmission Date: 20141002
  Serious: Yes (Other)
  Sender: FDA-Public Use
  Company Number: IT-VERTEX PHARMACEUTICALS INC-2014-001042

PATIENT
  Age: 63 Year
  Sex: Male
  Weight: 80 kg

DRUGS (8)
  1. INCIVO [Suspect]
     Indication: HEPATITIS C
     Dosage: 2250 MG, QD
     Route: 048
     Dates: start: 20131031, end: 20140123
  2. COPEGUS [Suspect]
     Indication: HEPATITIS C
     Dosage: DOSAGE FORM: FILM COATED TABLET
     Route: 048
     Dates: start: 20130927, end: 20140125
  3. PEGASYS [Suspect]
     Indication: HEPATITIS C
     Dosage: DOSAGE FORM: SOLUTION FOR INJECTION
     Route: 058
     Dates: start: 20130927, end: 20140123
  4. ZYLORIC [Suspect]
     Indication: HYPERURICAEMIA
     Dosage: DOSAGE FORM: TABLETS
     Route: 048
     Dates: start: 20131204, end: 20140124
  5. ENAPREN [Concomitant]
     Indication: PRODUCT USED FOR UNKNOWN INDICATION
     Dosage: DOSAGE FORM: TABLETS
  6. FERRO-GRAD [Concomitant]
     Indication: PRODUCT USED FOR UNKNOWN INDICATION
     Dosage: DOSAGE FORM: PROLONGED-RELEASE TABLET
     Route: 048
  7. FOLINA [Concomitant]
     Indication: PRODUCT USED FOR UNKNOWN INDICATION
     Dosage: DOSAGE FORM: CAPSULES
     Route: 048
     Dates: start: 20130920, end: 20140123
  8. EPREX [Concomitant]
     Indication: PRODUCT USED FOR UNKNOWN INDICATION
     Dates: start: 20131204, end: 20140123

REACTIONS (1)
  - Dermatitis bullous [Recovering/Resolving]
